FAERS Safety Report 11884383 (Version 5)
Quarter: 2016Q1

REPORT INFORMATION
  Report Type: Report from Study
  Country: CA (occurrence: CA)
  Receive Date: 20160103
  Receipt Date: 20160330
  Transmission Date: 20160526
  Serious: Yes (Other)
  Sender: FDA-Public Use
  Company Number: PHHY2015CA169355

PATIENT
  Age: 44 Year
  Sex: Female

DRUGS (3)
  1. TASIGNA [Suspect]
     Active Substance: NILOTINIB
     Indication: CHRONIC MYELOID LEUKAEMIA
     Dosage: 300 MG, BID
     Route: 048
     Dates: start: 20151208, end: 20160218
  2. MAGNESIUM [Concomitant]
     Active Substance: MAGNESIUM
     Indication: PRODUCT USED FOR UNKNOWN INDICATION
     Dosage: UNK
     Route: 065
  3. TECTA [Concomitant]
     Active Substance: PANTOPRAZOLE MAGNESIUM
     Indication: PRODUCT USED FOR UNKNOWN INDICATION
     Dosage: 40 MG, UNK
     Route: 048

REACTIONS (14)
  - Hepatic enzyme increased [Recovering/Resolving]
  - Headache [Unknown]
  - Eczema [Unknown]
  - Dyspepsia [Unknown]
  - Malaise [Unknown]
  - Acne [Unknown]
  - Hyperhidrosis [Unknown]
  - Skin disorder [Unknown]
  - Nausea [Unknown]
  - Rash generalised [Unknown]
  - Fatigue [Unknown]
  - Feeling hot [Unknown]
  - Ulcer [Unknown]
  - Pruritus [Unknown]

NARRATIVE: CASE EVENT DATE: 20160218
